FAERS Safety Report 19659334 (Version 1)
Quarter: 2021Q3

REPORT INFORMATION
  Report Type: Other
  Country: GB (occurrence: GB)
  Receive Date: 20210805
  Receipt Date: 20210805
  Transmission Date: 20211014
  Serious: Yes (Other)
  Sender: FDA-Public Use
  Company Number: GB-CELLTRION INC.-2021GB010257

PATIENT

DRUGS (1)
  1. RITUXIMAB (UNKNOWN) [Suspect]
     Active Substance: RITUXIMAB
     Indication: ILL-DEFINED DISORDER
     Dosage: NOT PROVIDED

REACTIONS (3)
  - Musculoskeletal stiffness [Unknown]
  - Off label use [Unknown]
  - Neuropathy peripheral [Unknown]
